FAERS Safety Report 11223042 (Version 4)
Quarter: 2015Q4

REPORT INFORMATION
  Report Type: Spontaneous
  Country: US (occurrence: US)
  Receive Date: 20150626
  Receipt Date: 20151030
  Transmission Date: 20160304
  Serious: Yes (Hospitalization)
  Sender: FDA-Public Use
  Company Number: US-JAZZ-2015-US-009535

PATIENT
  Age: 34 Year
  Sex: Female

DRUGS (9)
  1. RITALIN LA [Suspect]
     Active Substance: METHYLPHENIDATE HYDROCHLORIDE
     Indication: SOMNOLENCE
     Dosage: UNK
     Dates: start: 20150602, end: 20150621
  2. XYREM [Suspect]
     Active Substance: SODIUM OXYBATE
     Indication: SOMNOLENCE
     Dosage: 2.5 G, BID
     Route: 048
     Dates: start: 201506, end: 2015
  3. LITHIUM CARBONATE. [Suspect]
     Active Substance: LITHIUM CARBONATE
     Indication: PRODUCT USED FOR UNKNOWN INDICATION
     Dosage: UNK
     Dates: start: 20150602
  4. CYMBALTA [Concomitant]
     Active Substance: DULOXETINE HYDROCHLORIDE
     Indication: PRODUCT USED FOR UNKNOWN INDICATION
     Dosage: UNK
     Dates: start: 20150602
  5. XYREM [Suspect]
     Active Substance: SODIUM OXYBATE
     Dosage: 2.25 G, BID
     Route: 048
     Dates: start: 2015
  6. IBUPROFEN. [Concomitant]
     Active Substance: IBUPROFEN
     Indication: PRODUCT USED FOR UNKNOWN INDICATION
     Dosage: UNK
     Dates: start: 20150602
  7. DEPLIN [Concomitant]
     Active Substance: LEVOMEFOLATE CALCIUM
     Indication: METHYLENETETRAHYDROFOLATE REDUCTASE GENE MUTATION
     Dosage: UNK
     Dates: start: 20150602
  8. MULTIVITAMIN [Concomitant]
     Active Substance: VITAMINS
     Indication: PRODUCT USED FOR UNKNOWN INDICATION
     Dosage: UNK
     Dates: start: 20150611
  9. XYREM [Suspect]
     Active Substance: SODIUM OXYBATE
     Indication: NARCOLEPSY
     Dosage: 2.25 G, BID
     Route: 048
     Dates: start: 201506, end: 201506

REACTIONS (3)
  - Influenza [Recovering/Resolving]
  - Paraesthesia [Not Recovered/Not Resolved]
  - Muscle contractions involuntary [Not Recovered/Not Resolved]

NARRATIVE: CASE EVENT DATE: 20150621
